FAERS Safety Report 9701018 (Version 2)
Quarter: 2014Q1

REPORT INFORMATION
  Report Type: Spontaneous
  Country: US (occurrence: US)
  Receive Date: 20131121
  Receipt Date: 20140106
  Transmission Date: 20141002
  Serious: No
  Sender: FDA-Public Use
  Company Number: US-TEVA-445093USA

PATIENT
  Age: 78 Year
  Sex: Female

DRUGS (3)
  1. TREANDA [Suspect]
     Indication: CHRONIC LYMPHOCYTIC LEUKAEMIA
     Dosage: 25MG/5ML
     Route: 042
     Dates: start: 201303
  2. DEXAMETHASONE [Concomitant]
     Route: 042
  3. GRANISETRON [Concomitant]
     Route: 042

REACTIONS (1)
  - Pyrexia [Recovered/Resolved]
